FAERS Safety Report 25644422 (Version 1)
Quarter: 2025Q3

REPORT INFORMATION
  Report Type: Spontaneous
  Country: US (occurrence: US)
  Receive Date: 20250805
  Receipt Date: 20250805
  Transmission Date: 20251021
  Serious: No
  Sender: NEUROCRINE BIOSCIENCES
  Company Number: US-NBI-NBI-US-2182-2025

PATIENT
  Sex: Female

DRUGS (4)
  1. INGREZZA [Suspect]
     Active Substance: VALBENAZINE DITOSYLATE
     Indication: Tardive dyskinesia
     Route: 065
  2. ABILIFY [Suspect]
     Active Substance: ARIPIPRAZOLE
  3. CAPLYTA [Suspect]
     Active Substance: LUMATEPERONE
  4. INVEGA [Suspect]
     Active Substance: PALIPERIDONE

REACTIONS (2)
  - Lip swelling [Recovered/Resolved]
  - Urticaria [Recovered/Resolved]
